FAERS Safety Report 5125217-2 (Version None)
Quarter: 2006Q4

REPORT INFORMATION
  Report Type: 
  Country: None (occurrence: None)
  Receive Date: 20061006
  Receipt Date: 20060922
  Transmission Date: 20070319
  Serious: Yes (Hospitalization)
  Sender: FDA-Public Use
  Company Number: 2006PV020750

PATIENT
  Age: 45 Year
  Sex: Female

DRUGS (9)
  1. BYETTA [Suspect]
     Indication: DIABETES MELLITUS NON-INSULIN-DEPENDENT
     Dosage: SEE IMAGE
     Route: 058
     Dates: start: 20060601, end: 20060701
  2. BYETTA [Suspect]
     Indication: DIABETES MELLITUS NON-INSULIN-DEPENDENT
     Dosage: SEE IMAGE
     Route: 058
     Dates: start: 20060701, end: 20060901
  3. PRANDIN [Concomitant]
  4. SYNTHROID [Concomitant]
  5. LIPITOR [Concomitant]
  6. HYZAAR 100/125 [Concomitant]
  7. GLUCOPHAGE [Concomitant]
  8. ZANTAC [Concomitant]
  9. INSULIN [Concomitant]

REACTIONS (19)
  - ARTHRALGIA [None]
  - ASTHMA [None]
  - BLOOD GLUCOSE INCREASED [None]
  - BLOOD PRESSURE DECREASED [None]
  - BRONCHITIS [None]
  - BRONCHOSPASM [None]
  - CONDITION AGGRAVATED [None]
  - COUGH [None]
  - CREPITATIONS [None]
  - FATIGUE [None]
  - MEDICAL DEVICE COMPLICATION [None]
  - PHARMACEUTICAL PRODUCT COMPLAINT [None]
  - PNEUMONIA MYCOPLASMAL [None]
  - PNEUMONIA PRIMARY ATYPICAL [None]
  - PNEUMONIA VIRAL [None]
  - PYREXIA [None]
  - TACHYCARDIA [None]
  - THERAPY NON-RESPONDER [None]
  - VIRAL UPPER RESPIRATORY TRACT INFECTION [None]
